FAERS Safety Report 9562604 (Version 2)
Quarter: 2014Q1

REPORT INFORMATION
  Report Type: Spontaneous
  Country: FR (occurrence: FR)
  Receive Date: 20130927
  Receipt Date: 20140107
  Transmission Date: 20141002
  Serious: Yes (Life-Threatening, Other)
  Sender: FDA-Public Use
  Company Number: FR-ABBVIE-13P-056-1151227-00

PATIENT
  Age: 45 Year
  Sex: Female
  Weight: 52 kg

DRUGS (2)
  1. HUMIRA [Suspect]
     Indication: CROHN^S DISEASE
     Dosage: 80 MG AS INDUCTION DOSE
     Dates: start: 20130327
  2. HUMIRA [Suspect]
     Dates: end: 20130807

REACTIONS (7)
  - Vertigo [Unknown]
  - Asthma [Unknown]
  - Nausea [Unknown]
  - Vomiting [Unknown]
  - Erythema [Unknown]
  - Dyspnoea [Unknown]
  - Hypersensitivity [Recovered/Resolved]
